FAERS Safety Report 8840284 (Version 1)
Quarter: 2012Q4

REPORT INFORMATION
  Report Type: 
  Country: PL (occurrence: PL)
  Receive Date: 20121015
  Receipt Date: 20121015
  Transmission Date: 20130627
  Serious: Yes (Hospitalization)
  Sender: FDA-Public Use
  Company Number: PL-ROCHE-1145036

PATIENT
  Age: 70 Year
  Sex: Female

DRUGS (1)
  1. BONVIVA [Suspect]
     Indication: OSTEOPOROSIS
     Route: 048

REACTIONS (1)
  - Blood pressure increased [Recovered/Resolved]
